FAERS Safety Report 23462885 (Version 1)
Quarter: 2024Q1

REPORT INFORMATION
  Report Type: Spontaneous
  Country: US (occurrence: US)
  Receive Date: 20240131
  Receipt Date: 20240131
  Transmission Date: 20240410
  Serious: No
  Sender: FDA-Public Use
  Company Number: US-PURDUE-USA-2024-0307323

PATIENT
  Age: 32 Year
  Sex: Male

DRUGS (3)
  1. BUPRENORPHINE [Suspect]
     Active Substance: BUPRENORPHINE
     Indication: Drug dependence
     Dosage: UNK  WEEKLY (EVERY MONDAY)
     Route: 065
  2. HEROIN [Suspect]
     Active Substance: DIAMORPHINE
     Indication: Product used for unknown indication
     Dosage: UNK (ON WEEKENDS)
     Route: 065
  3. FENTANYL [Suspect]
     Active Substance: FENTANYL\FENTANYL CITRATE
     Indication: Drug dependence
     Dosage: UNK
     Route: 065

REACTIONS (1)
  - Drug withdrawal syndrome [Unknown]

NARRATIVE: CASE EVENT DATE: 20200201
